FAERS Safety Report 19020119 (Version 1)
Quarter: 2021Q1

REPORT INFORMATION
  Report Type: Spontaneous
  Country: HR (occurrence: HR)
  Receive Date: 20210317
  Receipt Date: 20210317
  Transmission Date: 20210420
  Serious: Yes (Hospitalization)
  Sender: FDA-Public Use
  Company Number: HR-ELI_LILLY_AND_COMPANY-HR202103006431

PATIENT
  Age: 40 Year
  Sex: Female

DRUGS (1)
  1. EMGALITY [Suspect]
     Active Substance: GALCANEZUMAB-GNLM
     Indication: MIGRAINE WITH AURA
     Dosage: UNK UNK, MONTHLY (1/M)
     Route: 065
     Dates: start: 202003

REACTIONS (4)
  - Erythema [Unknown]
  - Hepatic enzyme increased [Unknown]
  - Migraine without aura [Unknown]
  - Vomiting [Unknown]

NARRATIVE: CASE EVENT DATE: 20210220
